FAERS Safety Report 10802314 (Version 1)
Quarter: 2015Q1

REPORT INFORMATION
  Report Type: Spontaneous
  Country: GB (occurrence: GB)
  Receive Date: 20150217
  Receipt Date: 20150217
  Transmission Date: 20150721
  Serious: Yes (Hospitalization)
  Sender: FDA-Public Use
  Company Number: GB-SA-2015SA017581

PATIENT
  Sex: Male

DRUGS (1)
  1. FABRAZYME [Suspect]
     Active Substance: AGALSIDASE BETA
     Route: 042

REACTIONS (4)
  - Blindness [Unknown]
  - Pain in extremity [Unknown]
  - Nervousness [Unknown]
  - Cerebrovascular accident [Unknown]
